FAERS Safety Report 23771850 (Version 1)
Quarter: 2024Q2

REPORT INFORMATION
  Report Type: Spontaneous
  Country: FR (occurrence: FR)
  Receive Date: 20240423
  Receipt Date: 20240423
  Transmission Date: 20240716
  Serious: Yes (Other)
  Sender: FDA-Public Use
  Company Number: FR-ENDO PHARMACEUTICALS INC-2024-001835

PATIENT
  Age: 79 Year
  Sex: Male

DRUGS (6)
  1. EDEX [Suspect]
     Active Substance: ALPROSTADIL
     Indication: Erectile dysfunction
     Dosage: 1 DOSAGE FORM, TID
     Route: 017
     Dates: start: 201705
  2. EDEX [Suspect]
     Active Substance: ALPROSTADIL
     Indication: Erectile dysfunction
     Dosage: 1 DOSAGE FORM, TID
     Route: 017
     Dates: start: 201705
  3. EDEX [Suspect]
     Active Substance: ALPROSTADIL
     Indication: Erectile dysfunction
     Dosage: 1 DOSAGE FORM, TID
     Route: 017
     Dates: start: 201705
  4. EDEX [Suspect]
     Active Substance: ALPROSTADIL
     Indication: Erectile dysfunction
     Dosage: 1 DOSAGE FORM, TID
     Route: 017
     Dates: start: 201705
  5. EDEX [Suspect]
     Active Substance: ALPROSTADIL
     Indication: Erectile dysfunction
     Dosage: 1 DOSAGE FORM, TID
     Route: 017
     Dates: start: 201705
  6. SILDENAFIL ACCORD [Concomitant]
     Indication: Erectile dysfunction
     Dosage: 100 MILLIGRAM, DAILY
     Route: 048
     Dates: start: 202402

REACTIONS (3)
  - Sexual activity increased [Not Recovered/Not Resolved]
  - Drug dependence [Not Recovered/Not Resolved]
  - Drug abuse [Not Recovered/Not Resolved]

NARRATIVE: CASE EVENT DATE: 20230101
